FAERS Safety Report 24635594 (Version 1)
Quarter: 2024Q4

REPORT INFORMATION
  Report Type: Spontaneous
  Country: US (occurrence: US)
  Receive Date: 20241119
  Receipt Date: 20241119
  Transmission Date: 20250115
  Serious: No
  Sender: CATALYST PHARMA
  Company Number: US-CATALYST PHARMACEUTICALS-US-CATA-24-00821

PATIENT
  Sex: Male
  Weight: 26.476 kg

DRUGS (3)
  1. AGAMREE [Suspect]
     Active Substance: VAMOROLONE
     Indication: Duchenne muscular dystrophy
     Dosage: 4 ML ONCE A DAY
     Route: 048
     Dates: start: 20240601, end: 20240819
  2. PREDNISONE [Concomitant]
     Active Substance: PREDNISONE
     Indication: Duchenne muscular dystrophy
     Dosage: 15 MG TWICE A DAY
     Route: 065
  3. PREDNISONE [Concomitant]
     Active Substance: PREDNISONE
     Dosage: UNKNOWN
     Route: 065
     Dates: start: 2024

REACTIONS (2)
  - Flatulence [Recovered/Resolved]
  - Abdominal distension [Recovered/Resolved]

NARRATIVE: CASE EVENT DATE: 20240101
